FAERS Safety Report 22376687 (Version 5)
Quarter: 2023Q4

REPORT INFORMATION
  Report Type: Report from Study
  Country: JP (occurrence: JP)
  Receive Date: 20230528
  Receipt Date: 20231031
  Transmission Date: 20240109
  Serious: Yes (Other)
  Sender: FDA-Public Use
  Company Number: JP-JNJFOC-20230371050

PATIENT
  Age: 56 Year
  Sex: Male
  Weight: 86 kg

DRUGS (3)
  1. ERLEADA [Suspect]
     Active Substance: APALUTAMIDE
     Indication: Prostate cancer
     Route: 048
     Dates: start: 20230320, end: 202307
  2. BICALUTAMIDE [Concomitant]
     Active Substance: BICALUTAMIDE
     Indication: Product used for unknown indication
     Dosage: DOSE UNKNOWN
     Route: 048
  3. GOSERELIN [Concomitant]
     Active Substance: GOSERELIN
     Indication: Prostate cancer
     Dosage: DOSE UNKNOWN
     Route: 058

REACTIONS (17)
  - Blood pressure fluctuation [Not Recovered/Not Resolved]
  - Haemorrhage [Recovering/Resolving]
  - Malaise [Not Recovered/Not Resolved]
  - Taste disorder [Not Recovered/Not Resolved]
  - Pruritus [Recovered/Resolved]
  - Weight decreased [Not Recovered/Not Resolved]
  - Waist circumference decreased [Not Recovered/Not Resolved]
  - Hunger [Not Recovered/Not Resolved]
  - Dry skin [Not Recovered/Not Resolved]
  - Rash [Recovering/Resolving]
  - Urine output increased [Not Recovered/Not Resolved]
  - Middle insomnia [Recovered/Resolved]
  - Somnolence [Not Recovered/Not Resolved]
  - Injection site pain [Not Recovered/Not Resolved]
  - Pain [Recovering/Resolving]
  - Pre-existing condition improved [Recovered/Resolved]
  - Therapeutic response unexpected [Recovered/Resolved]

NARRATIVE: CASE EVENT DATE: 20230101
